FAERS Safety Report 6051233-2 (Version None)
Quarter: 2009Q1

REPORT INFORMATION
  Report Type: 
  Country: None (occurrence: None)
  Receive Date: 20090126
  Receipt Date: 20081111
  Transmission Date: 20090719
  Serious: Yes (Other)
  Sender: FDA-Public Use
  Company Number: US-PFIZER INC-2008093614

PATIENT
  Sex: Female
  Weight: 68.027 kg

DRUGS (4)
  1. LYRICA [Suspect]
     Indication: NEURALGIA
     Dates: start: 20080701
  2. HYDROCODONE BITARTRATE [Concomitant]
  3. CEFALEXIN [Concomitant]
  4. ZANAFLEX [Concomitant]

REACTIONS (10)
  - AGGRESSION [None]
  - ANXIETY [None]
  - ARTHRALGIA [None]
  - DEPRESSION [None]
  - HALLUCINATION, AUDITORY [None]
  - HYPOKINESIA [None]
  - INSOMNIA [None]
  - MOOD SWINGS [None]
  - PAIN [None]
  - UNEVALUABLE EVENT [None]
